FAERS Safety Report 7473628-2 (Version None)
Quarter: 2011Q1

REPORT INFORMATION
  Report Type: 
  Country: None (occurrence: None)
  Receive Date: 20110302
  Receipt Date: 20100701
  Transmission Date: 20110831
  Serious: Yes (Death)
  Sender: FDA-Public Use
  Company Number: 163-21880-10052011

PATIENT
  Age: 82 Year
  Sex: Female

DRUGS (2)
  1. REVLIMID [Suspect]
  2. REVLIMID [Suspect]
     Indication: MULTIPLE MYELOMA
     Dosage: 10 MG, QHS, PO
     Route: 048
     Dates: start: 20100511, end: 20100518

REACTIONS (3)
  - MULTIPLE MYELOMA [None]
  - AMYLOIDOSIS [None]
  - CARDIAC FAILURE [None]
